FAERS Safety Report 8389648-X (Version None)
Quarter: 2012Q2

REPORT INFORMATION
  Report Type: 
  Country: None (occurrence: None)
  Receive Date: 20120528
  Receipt Date: 20120516
  Transmission Date: 20120825
  Serious: Yes (Other)
  Sender: FDA-Public Use
  Company Number: GB-ROCHE-1054716

PATIENT
  Sex: Male

DRUGS (2)
  1. RIBAVIRIN [Concomitant]
     Indication: HEPATITIS C
     Route: 048
     Dates: start: 20110810, end: 20120210
  2. PEGASYS [Suspect]
     Indication: HEPATITIS C
     Dosage: WEEKLY
     Route: 058
     Dates: start: 20110810, end: 20120210

REACTIONS (9)
  - INSOMNIA [None]
  - DYSPNOEA [None]
  - UNEVALUABLE EVENT [None]
  - VISION BLURRED [None]
  - IRRITABLE BOWEL SYNDROME [None]
  - DIZZINESS [None]
  - NIGHT SWEATS [None]
  - RASH [None]
  - FATIGUE [None]
